FAERS Safety Report 5042667-3 (Version None)
Quarter: 2006Q2

REPORT INFORMATION
  Report Type: 
  Country: None (occurrence: None)
  Receive Date: 20060627
  Receipt Date: 20060607
  Transmission Date: 20061013
  Serious: Yes (Hospitalization)
  Sender: FDA-Public Use
  Company Number: DSA_28313_2006

PATIENT
  Age: 57 Year
  Sex: Female

DRUGS (10)
  1. TEMESTA [Suspect]
     Dosage: 2.5 MG Q DAY PO
     Route: 048
     Dates: start: 20051215
  2. TEMESTA [Suspect]
     Dosage: VAR Q DAY PO
     Route: 048
  3. DEANXIT [Suspect]
     Dosage: DF Q DAY PO
     Route: 048
     Dates: start: 20060315, end: 20060409
  4. DEANXIT [Suspect]
     Dosage: DF Q DAY PO
     Route: 048
     Dates: start: 20060410, end: 20060414
  5. EFFEXOR [Concomitant]
  6. REMERON [Concomitant]
  7. NORTRIPTYLINE HCL [Concomitant]
  8. IMMOVANE [Concomitant]
  9. EUTHYROX [Concomitant]
  10. ROCALTROL [Concomitant]

REACTIONS (10)
  - AFFECT LABILITY [None]
  - CONFUSIONAL STATE [None]
  - DELIRIUM [None]
  - DEPRESSED LEVEL OF CONSCIOUSNESS [None]
  - DISTURBANCE IN ATTENTION [None]
  - DRUG WITHDRAWAL SYNDROME [None]
  - HYPOCALCAEMIA [None]
  - MEMORY IMPAIRMENT [None]
  - NEGATIVISM [None]
  - RESTLESSNESS [None]
